FAERS Safety Report 8976317 (Version 1)
Quarter: 2012Q4

REPORT INFORMATION
  Report Type: 
  Country: US (occurrence: US)
  Receive Date: 20121219
  Receipt Date: 20121219
  Transmission Date: 20130627
  Serious: No
  Sender: FDA-Public Use
  Company Number: US-AMGEN-USASP2012063692

PATIENT
  Sex: Female

DRUGS (2)
  1. PROLIA [Suspect]
     Indication: OSTEOPOROSIS
     Dosage: UNK
     Dates: start: 201205
  2. LEVOTHYROXINE [Concomitant]
     Dosage: UNK

REACTIONS (6)
  - Infection [Recovered/Resolved]
  - Excoriation [Recovered/Resolved]
  - Pallor [Recovered/Resolved]
  - Feeling hot [Recovered/Resolved]
  - Oedema peripheral [Recovered/Resolved]
  - Stomatitis [Not Recovered/Not Resolved]
